FAERS Safety Report 8586683-3 (Version None)
Quarter: 2012Q3

REPORT INFORMATION
  Report Type: 
  Country: None (occurrence: None)
  Receive Date: 20120810
  Receipt Date: 20120731
  Transmission Date: 20120928
  Serious: Yes (Life-Threatening)
  Sender: FDA-Public Use
  Company Number: JP-AMGEN-JPNCT2012050223

PATIENT
  Age: 75 Year
  Sex: Male
  Weight: 67 kg

DRUGS (13)
  1. FLIVAS [Concomitant]
     Dosage: UNK
     Route: 048
  2. ZOLADEX [Concomitant]
     Dosage: UNK
     Route: 042
  3. TANATRIL [Concomitant]
     Dosage: UNK
     Route: 048
  4. AMLODIPINE [Concomitant]
     Dosage: UNK
     Route: 048
  5. STAYBLA [Concomitant]
     Dosage: UNK
     Route: 048
  6. DARBEPOETIN ALFA - KHK [Suspect]
     Indication: NEPHROGENIC ANAEMIA
     Dosage: 60 MUG, Q4WK
     Route: 058
     Dates: start: 20111004, end: 20120313
  7. DIOVAN [Concomitant]
     Dosage: UNK
     Route: 048
  8. LASIX [Concomitant]
     Dosage: UNK
     Route: 048
  9. ALLOPURINOL [Concomitant]
     Dosage: UNK
     Route: 048
  10. ARGAMATE [Concomitant]
     Dosage: UNK
     Route: 048
  11. LIPITOR [Concomitant]
     Dosage: UNK
     Route: 048
  12. ATELEC [Concomitant]
     Dosage: UNK
     Route: 048
  13. LEUPROLIDE ACETATE [Concomitant]
     Dosage: UNK
     Route: 042

REACTIONS (1)
  - LUNG NEOPLASM MALIGNANT [None]
